FAERS Safety Report 10591358 (Version 4)
Quarter: 2015Q2

REPORT INFORMATION
  Report Type: Spontaneous
  Country: US (occurrence: US)
  Receive Date: 20141118
  Receipt Date: 20150421
  Transmission Date: 20150821
  Serious: Yes (Hospitalization)
  Sender: FDA-Public Use
  Company Number: US-009507513-1110USA03460

PATIENT
  Sex: Male

DRUGS (1)
  1. PROPECIA [Suspect]
     Active Substance: FINASTERIDE
     Indication: ALOPECIA
     Dosage: 1 MG, QD
     Route: 048
     Dates: start: 2004, end: 200704

REACTIONS (28)
  - Back pain [Unknown]
  - Sexual dysfunction [Unknown]
  - Partner stress [Unknown]
  - Penile size reduced [Unknown]
  - Post-traumatic stress disorder [Unknown]
  - Blood pressure abnormal [Unknown]
  - Wound [Unknown]
  - Back injury [Unknown]
  - Bronchitis [Unknown]
  - Depression [Unknown]
  - Libido decreased [Unknown]
  - Anxiety [Unknown]
  - Cognitive disorder [Unknown]
  - Haemangioma of liver [Unknown]
  - Vision blurred [Unknown]
  - Bronchial hyperreactivity [Unknown]
  - Ejaculation disorder [Unknown]
  - Ejaculation failure [Unknown]
  - Sexually transmitted disease [Unknown]
  - Appendicectomy [Unknown]
  - General symptom [Unknown]
  - General symptom [Unknown]
  - Organic erectile dysfunction [Unknown]
  - Psychiatric symptom [Unknown]
  - Tinea cruris [Unknown]
  - Fatigue [Unknown]
  - Appendicitis [Unknown]
  - Reproductive tract disorder [Unknown]

NARRATIVE: CASE EVENT DATE: 200607
